FAERS Safety Report 25719484 (Version 1)
Quarter: 2025Q3

REPORT INFORMATION
  Report Type: Report from Study
  Country: US (occurrence: US)
  Receive Date: 20250824
  Receipt Date: 20250824
  Transmission Date: 20251021
  Serious: No
  Sender: SANDOZ
  Company Number: US-SANDOZ-SDZ2025US058929

PATIENT
  Sex: Male

DRUGS (1)
  1. ADALIMUMAB [Suspect]
     Active Substance: ADALIMUMAB
     Indication: Product used for unknown indication
     Dosage: 40 MG, Q2W (STRENGTH 40 MG)
     Route: 058
     Dates: start: 20250422, end: 20250813

REACTIONS (3)
  - Circumstance or information capable of leading to device use error [Unknown]
  - Product dose omission issue [Unknown]
  - Device malfunction [Unknown]
